FAERS Safety Report 5073417-2 (Version None)
Quarter: 2006Q3

REPORT INFORMATION
  Report Type: 
  Country: None (occurrence: None)
  Receive Date: 20060717
  Receipt Date: 20060411
  Transmission Date: 20061208
  Serious: No
  Sender: FDA-Public Use
  Company Number: 2006000837

PATIENT
  Age: 72 Year
  Sex: Female

DRUGS (8)
  1. TARCEVA [Suspect]
     Dosage: 100 MG (QD), ORAL
     Route: 048
     Dates: start: 20060404, end: 20060401
  2. TARCEVA [Suspect]
     Dosage: 100 MG (QD), ORAL
     Route: 048
     Dates: start: 20060401
  3. GEMCITABINE [Concomitant]
  4. DILAUDID [Concomitant]
  5. INSULIN [Concomitant]
  6. COMPAZINE(PROCHLORPERAZIDE EDISYLATE) [Concomitant]
  7. MS CONTIN [Concomitant]
  8. SYNTHROID [Concomitant]

REACTIONS (1)
  - TREMOR [None]
